FAERS Safety Report 4835415-0 (Version None)
Quarter: 2005Q4

REPORT INFORMATION
  Report Type: 
  Country: None (occurrence: None)
  Receive Date: 20051117
  Receipt Date: 20051110
  Transmission Date: 20060501
  Serious: Yes (Other)
  Sender: FDA-Public Use
  Company Number: 200513775BCC

PATIENT
  Sex: Female

DRUGS (4)
  1. ASPIRIN [Suspect]
     Dosage: PRN, ORAL
     Route: 048
  2. FIORINAL [Suspect]
     Indication: TENSION HEADACHE
     Dosage: 50/325/40 MG, OW, ORAL
     Route: 048
     Dates: end: 20050301
  3. AROMASIN [Concomitant]
  4. HYPERTENSIVE MEDS [Concomitant]

REACTIONS (4)
  - BREAST CANCER FEMALE [None]
  - CONTUSION [None]
  - DRUG INTERACTION [None]
  - VEIN DISORDER [None]
